FAERS Safety Report 7552813-5 (Version None)
Quarter: 2011Q2

REPORT INFORMATION
  Report Type: 
  Country: None (occurrence: None)
  Receive Date: 20110616
  Receipt Date: 20110614
  Transmission Date: 20111010
  Serious: Yes (Other)
  Sender: FDA-Public Use
  Company Number: GB-PFIZER INC-2011130830

PATIENT
  Age: 65 Year
  Sex: Female

DRUGS (3)
  1. LEVETIRACETAM [Concomitant]
  2. PHENYTOIN SODIUM [Suspect]
     Indication: CONVULSION
     Dosage: 100 MG, THRICE
     Route: 042
     Dates: end: 20110501
  3. VALPROATE SODIUM [Concomitant]

REACTIONS (1)
  - PURPLE GLOVE SYNDROME [None]
